FAERS Safety Report 5209946-8 (Version None)
Quarter: 2006Q4

REPORT INFORMATION
  Report Type: 
  Country: None (occurrence: None)
  Receive Date: 20061128
  Receipt Date: 20060617
  Transmission Date: 20070319
  Serious: Yes (Disabling)
  Sender: FDA-Public Use
  Company Number: 2006068504

PATIENT
  Sex: Female

DRUGS (5)
  1. TIKOSYN [Suspect]
     Indication: DRUG USE FOR UNKNOWN INDICATION
     Dates: start: 20060509
  2. XANAX [Suspect]
     Indication: INSOMNIA
     Dosage: 5 MG,
     Dates: start: 19890101
  3. COREG [Suspect]
     Indication: DRUG USE FOR UNKNOWN INDICATION
  4. COQ-10 ST (TOCOPHEROL, UBIDECARENONE) [Concomitant]
  5. ASPIRIN [Concomitant]

REACTIONS (6)
  - DIZZINESS [None]
  - DYSPEPSIA [None]
  - HEADACHE [None]
  - INSOMNIA [None]
  - MUSCLE SPASMS [None]
  - NAUSEA [None]
